FAERS Safety Report 11109335 (Version 2)
Quarter: 2015Q2

REPORT INFORMATION
  Report Type: Spontaneous
  Country: US (occurrence: None)
  Receive Date: 20150511
  Receipt Date: 20150526
  Transmission Date: 20150821
  Serious: Yes (Hospitalization, Other)
  Sender: FDA-Public Use
  Company Number: AMAG201500380

PATIENT
  Age: 32 Year
  Sex: Female
  Weight: 79.4 kg

DRUGS (2)
  1. PRENATAL VITAMINS (ASCORBIC ACID, BIOTIN, MINERALS NOS, NICOTINIC ACID, RETINOL, TOCOPHEROL, VITAMIN B NOS, VITAMIN D NOS) [Concomitant]
  2. MAKENA [Suspect]
     Active Substance: HYDROXYPROGESTERONE CAPROATE
     Indication: PREMATURE DELIVERY
     Dosage: 250 MG, WEEKLY, INTRAMUSCULAR
     Route: 030
     Dates: start: 20150209, end: 20150413

REACTIONS (5)
  - Premature delivery [None]
  - Caesarean section [None]
  - Road traffic accident [None]
  - Maternal exposure timing unspecified [None]
  - Placental disorder [None]

NARRATIVE: CASE EVENT DATE: 20150416
